FAERS Safety Report 5626576-4 (Version None)
Quarter: 2008Q1

REPORT INFORMATION
  Report Type: 
  Country: None (occurrence: None)
  Receive Date: 20080212
  Receipt Date: 20080201
  Transmission Date: 20080703
  Serious: Yes (Hospitalization)
  Sender: FDA-Public Use
  Company Number: 2008001865

PATIENT
  Sex: Female

DRUGS (2)
  1. ZYRTEC [Suspect]
  2. ZYRTEC ALLERGY [Suspect]
     Dosage: ORAL
     Route: 048

REACTIONS (1)
  - BRONCHITIS [None]
